FAERS Safety Report 7086844-9 (Version None)
Quarter: 2010Q4

REPORT INFORMATION
  Report Type: 
  Country: None (occurrence: None)
  Receive Date: 20101105
  Receipt Date: 20101025
  Transmission Date: 20110411
  Serious: Yes (Other)
  Sender: FDA-Public Use
  Company Number: PT-AMGEN-QUU438519

PATIENT

DRUGS (12)
  1. ENBREL [Suspect]
     Indication: PSORIATIC ARTHROPATHY
     Dosage: 50 MG, QWK
     Route: 058
     Dates: start: 20080310, end: 20100721
  2. METHOTREXATE [Concomitant]
     Dosage: UNK UNK, UNK
     Route: 048
  3. METHOTREXATE [Concomitant]
     Dosage: UNKNOWN
     Route: 048
  4. PREDNISOLONE [Concomitant]
     Dosage: UNK UNK, QD
     Route: 048
  5. PREDNISOLONE [Concomitant]
     Dosage: 1 UNIT DOSE DAILY
     Route: 048
  6. CALCIUM [Concomitant]
     Dosage: 1200 MG, UNK
     Route: 048
  7. CALCIUM [Concomitant]
     Dosage: 1200 MG EVERY
     Route: 048
  8. DICLOFENAC SODIUM [Concomitant]
     Dosage: UNK UNK, QD
     Route: 048
  9. DICLOFENAC SODIUM [Concomitant]
     Dosage: 1 UNIT DOSE DAILY
     Route: 048
  10. FOLIC ACID [Concomitant]
     Dosage: UNK UNK, UNK
     Route: 048
  11. FOLIC ACID [Concomitant]
     Dosage: UNKNOWN
     Route: 048
  12. PANTOPRAZOLE [Concomitant]

REACTIONS (1)
  - GASTRIC CANCER [None]
